FAERS Safety Report 12154313 (Version 2)
Quarter: 2016Q1

REPORT INFORMATION
  Report Type: Spontaneous
  Country: US (occurrence: US)
  Receive Date: 20160307
  Receipt Date: 20160328
  Transmission Date: 20160526
  Serious: Yes (Other)
  Sender: FDA-Public Use
  Company Number: US-SA-2016SA039619

PATIENT

DRUGS (1)
  1. NASACORT ALLERGY 24HR [Suspect]
     Active Substance: TRIAMCINOLONE ACETONIDE
     Indication: HYPERSENSITIVITY
     Dosage: STOP DATE IN JANUARY
     Route: 065

REACTIONS (4)
  - Drug ineffective [Unknown]
  - Ear infection [Unknown]
  - Sinusitis [Unknown]
  - Hypersensitivity [Unknown]
